FAERS Safety Report 9663620 (Version 4)
Quarter: 2013Q4

REPORT INFORMATION
  Report Type: Spontaneous
  Country: US (occurrence: US)
  Receive Date: 20131101
  Receipt Date: 20131206
  Transmission Date: 20140711
  Serious: No
  Sender: FDA-Public Use
  Company Number: US-PFIZER INC-2013311950

PATIENT
  Age: 62 Year
  Sex: Female
  Weight: 113 kg

DRUGS (24)
  1. LYRICA [Suspect]
     Indication: FIBROMYALGIA
     Dosage: 150 MG, 3X/DAY (AM/NOON/PM)
     Route: 048
     Dates: end: 201309
  2. CYMBALTA [Concomitant]
     Indication: DEPRESSION
     Dosage: 60 MG, 2X/DAY (AM/PM)
  3. ESTRADIOL [Concomitant]
     Indication: HORMONE REPLACEMENT THERAPY
     Dosage: 2 MG, 1X/DAY (PM)
  4. DEXAMETHASONE [Concomitant]
     Dosage: UNK
  5. LORAZEPAM [Concomitant]
     Dosage: UNK
  6. METOPROLOL [Concomitant]
     Dosage: 100 MG, 2X/DAY (AM/PM)
  7. PLAVIX [Concomitant]
     Dosage: 75 MG, 1X/DAY (AM)
  8. L-THYROXIN [Concomitant]
     Dosage: 0.137 UG, 1X/DAY (AM)
  9. SIMVASTATIN [Concomitant]
     Dosage: 20 MG, 1X/DAY (PM)
  10. ZOLPIDEM [Concomitant]
     Dosage: 10 MG, 1X/DAY (PM)
  11. METFORMIN [Concomitant]
     Dosage: 500 MG, 2X/DAY (AM/PM)
  12. WARFARIN [Concomitant]
     Dosage: 7.5 MG, 1X/DAY (PM)
  13. BUPROPION SR [Concomitant]
     Dosage: 150 MG, 2X/DAY (AM/PM)
  14. FUROSEMIDE [Concomitant]
     Dosage: 40 MG, 1X/DAY (AM)
  15. VITAMIN B-12 [Concomitant]
     Dosage: 1000 MG, 1X/DAY (AM)
  16. ASA [Concomitant]
     Dosage: 81 MG, 1X/DAY (PM)
  17. KRILL OIL [Concomitant]
     Dosage: 300 MG, 1X/DAY
  18. FUROSEMIDE [Concomitant]
     Indication: OEDEMA PERIPHERAL
     Dosage: 80 MG, 1X/DAY PRN (AM)
  19. FUROSEMIDE [Concomitant]
     Indication: DYSPNOEA
  20. KLOR-CON [Concomitant]
     Indication: URINE OUTPUT DECREASED
     Dosage: 10 MEQ, 1X/DAY PRN (AM)
  21. METHOCARBAMOL [Concomitant]
     Indication: MUSCLE SPASMS
     Dosage: 750 MG, 3X/DAY (EVERY 8 HOURS) PRN
  22. OXYCODONE/APAP [Concomitant]
     Indication: PAIN
     Dosage: OXYCODONE 5MG/PARACETAMOL 325 MG, 3X/DAY (EVERY 8 HOURS) PRN
  23. VENTOLIN HFA [Concomitant]
     Indication: DYSPNOEA
     Dosage: 90 UG (2 PUFFS) 4X/DAY (EVERY 6 HOURS) PRN
  24. LISINOPRIL [Concomitant]
     Dosage: 40 MG, 1X/DAY (AM)

REACTIONS (4)
  - Fibromyalgia [Not Recovered/Not Resolved]
  - Pain [Not Recovered/Not Resolved]
  - Malaise [Not Recovered/Not Resolved]
  - Affect lability [Not Recovered/Not Resolved]
